FAERS Safety Report 4349937-2 (Version None)
Quarter: 2004Q2

REPORT INFORMATION
  Report Type: 
  Country: None (occurrence: None)
  Receive Date: 20040428
  Receipt Date: 20040428
  Transmission Date: 20050107
  Serious: Yes (Hospitalization)
  Sender: FDA-Public Use
  Company Number: None

PATIENT
  Age: 67 Year
  Sex: Male
  Weight: 119.8 kg

DRUGS (13)
  1. WARFARIN SODIUM [Suspect]
     Indication: ATRIAL FIBRILLATION
     Dosage: VARIABLE
     Dates: start: 20030201, end: 20040301
  2. NOVOLIN 70/30 [Concomitant]
  3. TERAZOSIN HCL [Concomitant]
  4. BACITRACIN [Concomitant]
  5. DIGOXIN [Concomitant]
  6. RANITIDINE HCL [Concomitant]
  7. ATENOLOL [Concomitant]
  8. CYANOCOBALAMIN [Concomitant]
  9. FELODIPINE [Concomitant]
  10. HYDROCHLOROTHIAZIDE [Concomitant]
  11. INSULIN [Concomitant]
  12. BACITRACIN [Concomitant]
  13. SIMVASTATIN [Concomitant]

REACTIONS (2)
  - ANAEMIA [None]
  - DYSPNOEA [None]
